FAERS Safety Report 6504410-8 (Version None)
Quarter: 2009Q4

REPORT INFORMATION
  Report Type: 
  Country: None (occurrence: None)
  Receive Date: 20091217
  Receipt Date: 20091207
  Transmission Date: 20100525
  Serious: Yes (Death, Hospitalization, Other)
  Sender: FDA-Public Use
  Company Number: US-BAXTER-2009BH018272

PATIENT
  Age: 69 Year
  Sex: Male

DRUGS (4)
  1. DIANEAL [Suspect]
     Indication: PERITONEAL DIALYSIS
     Route: 033
     Dates: start: 20060101, end: 20091123
  2. DIANEAL [Suspect]
     Route: 033
     Dates: start: 20060101, end: 20091123
  3. DIANEAL [Suspect]
     Indication: PERITONEAL DIALYSIS
     Route: 033
     Dates: start: 20091123, end: 20091125
  4. DIANEAL [Suspect]
     Route: 033
     Dates: start: 20091123, end: 20091125

REACTIONS (6)
  - CARDIAC ARREST [None]
  - HYPOTENSION [None]
  - NAUSEA [None]
  - PERITONITIS [None]
  - SEPSIS [None]
  - VOMITING [None]
